FAERS Safety Report 13367321 (Version 1)
Quarter: 2017Q1

REPORT INFORMATION
  Report Type: Spontaneous
  Country: US (occurrence: US)
  Receive Date: 20170323
  Receipt Date: 20170323
  Transmission Date: 20170429
  Serious: Yes (Hospitalization)
  Sender: FDA-Public Use
  Company Number: None

PATIENT
  Age: 70 Year
  Sex: Female
  Weight: 81 kg

DRUGS (14)
  1. FLUTICASONE NASAL SPRAY [Concomitant]
     Active Substance: FLUTICASONE
  2. CHOLECALCIFEROL (VITAMIN D) [Concomitant]
  3. MULTIPLE VITAMINS-MINERALS (MULTIVITAMIN ADULT) [Concomitant]
  4. PREDNISONE. [Concomitant]
     Active Substance: PREDNISONE
  5. PLAVIX [Concomitant]
     Active Substance: CLOPIDOGREL BISULFATE
  6. PEMBROLIZUMAB. [Suspect]
     Active Substance: PEMBROLIZUMAB
     Indication: LUNG CANCER METASTATIC
     Dosage: OTHER FREQUENCY:Q 3 WEEKS;?
     Route: 042
     Dates: start: 20161221, end: 20170201
  7. BIOTIN [Concomitant]
     Active Substance: BIOTIN
  8. OMEPRAZOLE. [Concomitant]
     Active Substance: OMEPRAZOLE
  9. ATORVASTATIN [Concomitant]
     Active Substance: ATORVASTATIN
  10. CALCIUM POLYCARBOPHIL (FIBERCON) [Concomitant]
  11. FEXOFENADINE HCI (ALLEGRA ALLERGY) [Concomitant]
  12. NYSTATIN. [Concomitant]
     Active Substance: NYSTATIN
  13. SULFAMETHOXAZOLE-TRIMETHOPRIM DS [Concomitant]
  14. POTASSIUM CHLORIDE. [Concomitant]
     Active Substance: POTASSIUM CHLORIDE

REACTIONS (2)
  - Adrenal haematoma [None]
  - Flank pain [None]

NARRATIVE: CASE EVENT DATE: 20170322
